FAERS Safety Report 7750997-7 (Version None)
Quarter: 2011Q3

REPORT INFORMATION
  Report Type: 
  Country: None (occurrence: None)
  Receive Date: 20110914
  Receipt Date: 20110906
  Transmission Date: 20111222
  Serious: Yes (Other)
  Sender: FDA-Public Use
  Company Number: DE-BAXTER-2011BH028671

PATIENT
  Age: 74 Year
  Sex: Female

DRUGS (1)
  1. GAMMAGARD LIQUID [Suspect]
     Indication: PRODUCT USED FOR UNKNOWN INDICATION
     Route: 065
     Dates: start: 20110906

REACTIONS (6)
  - HYPERHIDROSIS [None]
  - URTICARIA [None]
  - HYPOTENSION [None]
  - PRURITUS [None]
  - SYNCOPE [None]
  - NAUSEA [None]
